FAERS Safety Report 22281975 (Version 12)
Quarter: 2024Q3

REPORT INFORMATION
  Report Type: Spontaneous
  Country: US (occurrence: US)
  Receive Date: 20230504
  Receipt Date: 20240731
  Transmission Date: 20241017
  Serious: Yes (Other)
  Sender: BRISTOL MYERS SQUIBB
  Company Number: US-BRISTOL-MYERS SQUIBB COMPANY-2023-061127

PATIENT
  Age: 83 Year
  Sex: Female

DRUGS (4)
  1. REVLIMID [Suspect]
     Active Substance: LENALIDOMIDE
     Indication: Plasma cell myeloma
     Dosage: TAKE 1 CAPSULE (10MG ?TOTAL) BY MOUTH ?EVERY DAY
     Route: 048
     Dates: start: 20210323
  2. REVLIMID [Suspect]
     Active Substance: LENALIDOMIDE
     Dosage: TAKE 1 CAPSULE BY MOUTH EVERY DAY?TAKE 1 CAPSULE BY MOUTH EVERY DAY FOR 14 DAYS ON THEN 7 DAYS OFF
     Route: 048
     Dates: start: 20230515
  3. REVLIMID [Suspect]
     Active Substance: LENALIDOMIDE
     Dosage: TAKE 1 CAPSULE BY MOUTH EVERY DAY FOR 14 DAYS ON FOLLOWED BY 7 DAYS OFF
     Route: 048
     Dates: end: 202312
  4. REVLIMID [Suspect]
     Active Substance: LENALIDOMIDE
     Dosage: TAKE 1 CAPSULE (10MG) BY MOUTH DAILY FOR 2 WEEKS ON AND 2 WEEKS OFF
     Route: 048

REACTIONS (11)
  - Fall [Recovering/Resolving]
  - Head injury [Recovering/Resolving]
  - Hip fracture [Recovering/Resolving]
  - Off label use [Unknown]
  - Blood test abnormal [Recovered/Resolved]
  - Laboratory test abnormal [Recovered/Resolved]
  - Product dose omission issue [Unknown]
  - Product supply issue [Unknown]
  - Staphylococcal infection [Recovered/Resolved]
  - Therapy interrupted [Unknown]
  - Decreased appetite [Unknown]
